FAERS Safety Report 4707256-6 (Version None)
Quarter: 2005Q3

REPORT INFORMATION
  Report Type: 
  Country: None (occurrence: None)
  Receive Date: 20050701
  Receipt Date: 20050701
  Transmission Date: 20060218
  Serious: Yes (Hospitalization)
  Sender: FDA-Public Use
  Company Number: None

PATIENT
  Age: 49 Year
  Sex: Male

DRUGS (2)
  1. CITALOPRAM    40MG [Suspect]
     Dosage: 40MG  DAILY   ORAL
     Route: 048
  2. TRAMADOL HCL [Suspect]
     Dosage: 100MG   QID   ORAL
     Route: 048

REACTIONS (2)
  - CONVULSION [None]
  - INCORRECT DOSE ADMINISTERED [None]
